FAERS Safety Report 6038199-6 (Version None)
Quarter: 2009Q1

REPORT INFORMATION
  Report Type: 
  Country: None (occurrence: None)
  Receive Date: 20090113
  Receipt Date: 20090113
  Transmission Date: 20090719
  Serious: No
  Sender: FDA-Public Use
  Company Number: None

PATIENT
  Age: 54 Year
  Sex: Male
  Weight: 97.5234 kg

DRUGS (9)
  1. TOBRAMYCIN [Suspect]
     Indication: SINUSITIS
     Dosage: 1 VIAL IN NEBULIZER TWO TIMES DAILY NASAL
     Route: 045
     Dates: start: 20081128, end: 20081206
  2. CELEBREX [Concomitant]
  3. PROZAC [Concomitant]
  4. LIPITOR [Concomitant]
  5. PROTONIX [Concomitant]
  6. ASPIRIN [Concomitant]
  7. FLONASE [Concomitant]
  8. LYRICA [Concomitant]
  9. AMBIEN [Concomitant]

REACTIONS (5)
  - AUDIOGRAM ABNORMAL [None]
  - CONDITION AGGRAVATED [None]
  - FEAR [None]
  - HYPOACUSIS [None]
  - TINNITUS [None]
